FAERS Safety Report 7239741-X (Version None)
Quarter: 2011Q1

REPORT INFORMATION
  Report Type: 
  Country: None (occurrence: None)
  Receive Date: 20110122
  Receipt Date: 20101028
  Transmission Date: 20110831
  Serious: No
  Sender: FDA-Public Use
  Company Number: US-ALLERGAN-1013900US

PATIENT
  Age: 56 Year
  Sex: Female

DRUGS (2)
  1. LATISSE [Suspect]
     Indication: HAIR GROWTH ABNORMAL
  2. LATISSE [Suspect]
     Indication: GROWTH OF EYELASHES
     Dosage: 2 GTT, QHS
     Route: 061
     Dates: start: 20101020, end: 20101025

REACTIONS (5)
  - EYELIDS PRURITUS [None]
  - DRY EYE [None]
  - DRY SKIN [None]
  - DRUG ADMINISTERED AT INAPPROPRIATE SITE [None]
  - EYE PRURITUS [None]
